FAERS Safety Report 11168102 (Version 2)
Quarter: 2015Q2

REPORT INFORMATION
  Report Type: Other
  Country: US (occurrence: US)
  Receive Date: 20150605
  Receipt Date: 20150626
  Transmission Date: 20150821
  Serious: Yes (Other)
  Sender: FDA-Public Use
  Company Number: US-ACTELION-A-CH2015-118717

PATIENT
  Sex: Female

DRUGS (2)
  1. VELETRI [Suspect]
     Active Substance: EPOPROSTENOL
     Indication: PULMONARY ARTERIAL HYPERTENSION
     Route: 042
  2. NITRIC OXIDE. [Concomitant]
     Active Substance: NITRIC OXIDE

REACTIONS (2)
  - Caesarean section [Recovered/Resolved]
  - Pregnancy [Recovered/Resolved]
